FAERS Safety Report 19894630 (Version 1)
Quarter: 2021Q3

REPORT INFORMATION
  Report Type: Spontaneous
  Country: US (occurrence: US)
  Receive Date: 20210929
  Receipt Date: 20210929
  Transmission Date: 20211014
  Serious: Yes (Hospitalization, Other)
  Sender: FDA-Public Use
  Company Number: US-JNJFOC-20210906450

PATIENT

DRUGS (1)
  1. NEUTROGENA INVISIBLE DAILY DEFENSE BROAD SPECTRUM SPF 60 PLUS [Suspect]
     Active Substance: AVOBENZONE\HOMOSALATE\OCTISALATE\OCTOCRYLENE
     Indication: PRODUCT USED FOR UNKNOWN INDICATION
     Route: 061

REACTIONS (4)
  - Application site pruritus [Unknown]
  - Application site irritation [Unknown]
  - Application site acne [Unknown]
  - Application site swelling [Unknown]
